FAERS Safety Report 5194035-1 (Version None)
Quarter: 2006Q4

REPORT INFORMATION
  Report Type: 
  Country: None (occurrence: None)
  Receive Date: 20061222
  Receipt Date: 20061211
  Transmission Date: 20070319
  Serious: Yes (Hospitalization, Other)
  Sender: FDA-Public Use
  Company Number: 2005132357

PATIENT
  Age: 47 Year
  Sex: Male

DRUGS (2)
  1. NEURONTIN [Suspect]
     Indication: CONVULSION
     Dosage: (300 MG)
     Dates: start: 20000428, end: 20040827
  2. SEROQUEL [Suspect]

REACTIONS (7)
  - CONDITION AGGRAVATED [None]
  - DEPRESSION [None]
  - DRUG INEFFECTIVE [None]
  - GRAND MAL CONVULSION [None]
  - HALLUCINATION, AUDITORY [None]
  - INTENTIONAL OVERDOSE [None]
  - SUICIDE ATTEMPT [None]
